FAERS Safety Report 9101264 (Version 1)
Quarter: 2013Q1

REPORT INFORMATION
  Report Type: Spontaneous
  Country: FR (occurrence: FR)
  Receive Date: 20130215
  Receipt Date: 20130215
  Transmission Date: 20140127
  Serious: Yes (Hospitalization)
  Sender: FDA-Public Use
  Company Number: FR-SANOFI-AVENTIS-2013SA011764

PATIENT
  Age: 61 Year
  Sex: Female

DRUGS (4)
  1. ELOXATIN [Suspect]
     Indication: COLON CANCER
     Dosage: CYCLES 1 TO 8
     Route: 042
     Dates: start: 201202
  2. ELOXATIN [Suspect]
     Indication: COLON CANCER
     Route: 042
     Dates: start: 20120606
  3. FLUOROURACIL [Suspect]
     Indication: COLON CANCER
     Route: 042
     Dates: start: 201202
  4. FOLINIC ACID [Concomitant]
     Indication: COLON CANCER
     Route: 042
     Dates: start: 201202

REACTIONS (1)
  - Cerebellar ataxia [Recovered/Resolved]
